FAERS Safety Report 23269068 (Version 1)
Quarter: 2023Q4

REPORT INFORMATION
  Report Type: Spontaneous
  Country: CN (occurrence: CN)
  Receive Date: 20231206
  Receipt Date: 20231206
  Transmission Date: 20240110
  Serious: Yes (Other)
  Sender: FDA-Public Use
  Company Number: None

PATIENT
  Age: 90 Year
  Sex: Male
  Weight: 54 kg

DRUGS (2)
  1. CYCLOPHOSPHAMIDE [Suspect]
     Active Substance: CYCLOPHOSPHAMIDE
     Indication: Lymphoma
     Dosage: 0.4 G, ONE TIME IN ONE DAY, AS A PART OF R-CHOP
     Route: 041
     Dates: start: 20231110, end: 20231110
  2. VINCRISTINE SULFATE [Suspect]
     Active Substance: VINCRISTINE SULFATE
     Indication: Lymphoma
     Dosage: 1 MG, ONE TIME IN ONE DAY, AS A PART OF R-CHOP
     Route: 042
     Dates: start: 20231115, end: 20231115

REACTIONS (5)
  - Delirium [Recovering/Resolving]
  - Urinary retention [Unknown]
  - Bladder irritation [Recovering/Resolving]
  - Mental disorder [Unknown]
  - Cystitis [Recovering/Resolving]

NARRATIVE: CASE EVENT DATE: 20231111
